FAERS Safety Report 7487654-0 (Version None)
Quarter: 2011Q2

REPORT INFORMATION
  Report Type: 
  Country: None (occurrence: None)
  Receive Date: 20110518
  Receipt Date: 20090930
  Transmission Date: 20111010
  Serious: Yes (Death, Other)
  Sender: FDA-Public Use
  Company Number: US-BAYER-200934435NA

PATIENT
  Age: 64 Year
  Sex: Female
  Weight: 77 kg

DRUGS (34)
  1. PROTONIX [Concomitant]
     Dosage: 40 MG, UNK
     Route: 048
  2. LABETALOL [Concomitant]
     Dosage: 100 MG, UNK
     Route: 048
  3. PHENERGAN HCL [Concomitant]
     Dosage: 12.5 MG, UNK
     Route: 042
  4. REGLAN [Concomitant]
     Dosage: 10 MG, UNK
     Route: 042
  5. LEVAQUIN [Concomitant]
     Dosage: 500 MG, UNK
     Route: 048
  6. ACETYLSALICYLIC ACID SRT [Concomitant]
     Dosage: 81-325 MG
     Route: 048
  7. PROVERA [Concomitant]
     Dosage: 2.5 MG, QD
     Route: 048
  8. MORPHINE [Concomitant]
     Dosage: 2 MG, UNK
  9. COZAAR [Concomitant]
     Dosage: 50 MG, QD
  10. CEFUROXIME [Concomitant]
     Dosage: 50 ML, UNK
     Route: 042
  11. VASOPRESSIN [Concomitant]
  12. LOVENOX [Concomitant]
     Dosage: 1 MG/KG EVRY 12 HOURS
     Route: 058
  13. TRASYLOL [Suspect]
     Indication: MITRAL VALVE REPLACEMENT
     Dosage: 60ML/HOUR INFUSION
     Route: 042
     Dates: start: 20050509, end: 20050510
  14. LIDOCAINE [Concomitant]
     Dosage: 300 MG, UNK
     Route: 042
  15. TRASYLOL [Suspect]
     Indication: CORONARY ARTERY BYPASS
     Dosage: 1 ML,
     Route: 042
     Dates: start: 20050509, end: 20050510
  16. CELEBREX [Concomitant]
     Dosage: 200 MG, BID
     Route: 048
  17. ARAVA [Concomitant]
     Dosage: 10 MG, QD
     Route: 048
  18. DOBUTREX [Concomitant]
     Dosage: 25CC/HOUR
  19. TRASYLOL [Suspect]
     Dosage: 200ML
     Route: 042
     Dates: start: 20050509, end: 20050510
  20. TRASYLOL [Suspect]
     Dosage: 100ML BOLUS
     Route: 042
     Dates: start: 20050509, end: 20050510
  21. NIPRIDE [Concomitant]
     Route: 042
  22. TOPROL-XL [Concomitant]
     Dosage: 100 MG, BID
     Route: 048
  23. LIPITOR [Concomitant]
     Dosage: 20 MG, UNK
     Route: 048
  24. FLAGYL [Concomitant]
     Dosage: 500 MG, UNK
     Route: 048
  25. LASIX [Concomitant]
     Dosage: 40 MG, UNK
     Route: 042
  26. VANCOMYCIN [Concomitant]
     Dosage: 1 G, UNK
     Route: 042
  27. TRASYLOL [Suspect]
  28. PLAVIX [Concomitant]
     Dosage: 75 MG, QD
     Route: 048
  29. ROCEPHIN [Concomitant]
     Dosage: 1 G, BID
     Route: 058
  30. MUCOMYST [Concomitant]
     Dosage: 600 MG, UNK
     Route: 048
  31. HEPARIN [Concomitant]
     Dosage: 4000 U, UNK
     Route: 042
  32. NORVASC [Concomitant]
     Dosage: 5 MG, QD
     Route: 048
  33. PROTAMINE SULFATE [Concomitant]
     Dosage: 150 MG, UNK
     Route: 042
  34. MILRINONE [Concomitant]
     Dosage: 50MCG/KG AND 0.5MCG/KG/MIN
     Route: 042

REACTIONS (12)
  - DEATH [None]
  - UNEVALUABLE EVENT [None]
  - PAIN [None]
  - RENAL FAILURE [None]
  - INJURY [None]
  - MULTI-ORGAN FAILURE [None]
  - EMOTIONAL DISTRESS [None]
  - ANXIETY [None]
  - RENAL IMPAIRMENT [None]
  - RENAL INJURY [None]
  - STRESS [None]
  - FEAR [None]
